FAERS Safety Report 26048724 (Version 1)
Quarter: 2025Q4

REPORT INFORMATION
  Report Type: Spontaneous
  Country: US (occurrence: US)
  Receive Date: 20251115
  Receipt Date: 20251115
  Transmission Date: 20260117
  Serious: No
  Sender: GALDERMA
  Company Number: US-GALDERMA-US2025022324

PATIENT

DRUGS (2)
  1. NEMLUVIO [Suspect]
     Active Substance: NEMOLIZUMAB-ILTO
     Indication: Dermatitis atopic
     Dosage: UNK,LOADING DOSE
     Route: 058
  2. NEMLUVIO [Suspect]
     Active Substance: NEMOLIZUMAB-ILTO
     Dosage: UNK,MAINTENANCE DOSE
     Route: 058

REACTIONS (4)
  - Eye irritation [Unknown]
  - Periorbital swelling [Unknown]
  - Eczema eyelids [Unknown]
  - Periorbital eczema [Unknown]
